FAERS Safety Report 24825459 (Version 2)
Quarter: 2025Q1

REPORT INFORMATION
  Report Type: Spontaneous
  Country: FI (occurrence: FI)
  Receive Date: 20250109
  Receipt Date: 20250120
  Transmission Date: 20250409
  Serious: Yes (Disabling, Other)
  Sender: PFIZER
  Company Number: FI-TEVA-VS-3278392

PATIENT
  Age: 37 Year
  Sex: Male

DRUGS (4)
  1. AZITHROMYCIN [Suspect]
     Active Substance: AZITHROMYCIN
     Dates: start: 2023
  2. DOXYCYCLINE [Suspect]
     Active Substance: DOXYCYCLINE
     Indication: Dysuria
     Dosage: 100 MG, 2X/DAY (ONE-WEEK COURSE)
     Route: 048
     Dates: start: 20230516, end: 20230523
  3. DOXYCYCLINE [Suspect]
     Active Substance: DOXYCYCLINE
     Indication: Urethritis
  4. PIMAFUCORT [HYDROCORTISONE;NATAMYCIN;NEOMYCIN] [Concomitant]
     Indication: Penile erythema
     Route: 061
     Dates: start: 20230516

REACTIONS (11)
  - Erythema [Recovering/Resolving]
  - Genital dysaesthesia [Not Recovered/Not Resolved]
  - Genital hypoaesthesia [Recovering/Resolving]
  - Penile exfoliation [Recovering/Resolving]
  - Balanoposthitis [Recovering/Resolving]
  - Fixed eruption [Recovering/Resolving]
  - Penile pain [Recovering/Resolving]
  - Penile blister [Recovering/Resolving]
  - Penile erythema [Not Recovered/Not Resolved]
  - Penile dermatitis [Unknown]
  - Mucosal disorder [Not Recovered/Not Resolved]

NARRATIVE: CASE EVENT DATE: 20230501
